FAERS Safety Report 6660680-7 (Version None)
Quarter: 2010Q1

REPORT INFORMATION
  Report Type: 
  Country: None (occurrence: None)
  Receive Date: 20100331
  Receipt Date: 20100317
  Transmission Date: 20100710
  Serious: Yes (Disabling)
  Sender: FDA-Public Use
  Company Number: ES-ELI_LILLY_AND_COMPANY-ES201003005436

PATIENT
  Sex: Male
  Weight: 72 kg

DRUGS (5)
  1. FORTEO [Suspect]
     Indication: OSTEOPOROSIS
     Dosage: 20UG/ML, UNKNOWN
     Route: 058
     Dates: start: 20100310
  2. URBASON /00049601/ [Concomitant]
     Dosage: UNK, EACH MORNING
     Route: 048
  3. MORFINE [Concomitant]
     Dosage: UNK, 1/3 DAYS
     Route: 062
  4. MORFINE [Concomitant]
     Dosage: UNK, UNKNOWN
     Route: 062
     Dates: start: 20100301
  5. SINTROM [Concomitant]
     Dosage: UNK, EACH EVENING
     Route: 048

REACTIONS (1)
  - BONE PAIN [None]
